FAERS Safety Report 11982857 (Version 2)
Quarter: 2016Q1

REPORT INFORMATION
  Report Type: Spontaneous
  Country: FI (occurrence: FI)
  Receive Date: 20160201
  Receipt Date: 20160202
  Transmission Date: 20160526
  Serious: Yes (Hospitalization)
  Sender: FDA-Public Use
  Company Number: FI-ELI_LILLY_AND_COMPANY-FI201601009432

PATIENT
  Sex: Female

DRUGS (1)
  1. ZYPADHERA [Suspect]
     Active Substance: OLANZAPINE PAMOATE
     Indication: PRODUCT USED FOR UNKNOWN INDICATION
     Dosage: 300 MG, 2/M
     Route: 065

REACTIONS (5)
  - Dyspnoea [Unknown]
  - Chest discomfort [Unknown]
  - Pulmonary embolism [Unknown]
  - Inflammatory marker increased [Unknown]
  - Feeling abnormal [Unknown]
